FAERS Safety Report 7121009-3 (Version None)
Quarter: 2010Q4

REPORT INFORMATION
  Report Type: 
  Country: None (occurrence: None)
  Receive Date: 20101124
  Receipt Date: 20100201
  Transmission Date: 20110411
  Serious: No
  Sender: FDA-Public Use
  Company Number: US-PFIZER INC-2010014062

PATIENT
  Sex: Male
  Weight: 92.1 kg

DRUGS (10)
  1. TIKOSYN [Suspect]
     Dosage: 500 MG, 2X/DAY
     Route: 048
     Dates: start: 20080901
  2. METFORMIN [Concomitant]
     Indication: DIABETES MELLITUS
     Dosage: FREQUENCY: 2X/DAY,
     Route: 048
  3. OXYBUTYNIN [Concomitant]
     Indication: BLADDER DISORDER
     Dosage: 5 MG, DAILY
     Route: 048
  4. ACETYLSALICYLIC ACID [Concomitant]
     Dosage: 81 MG, 1X/DAY
     Route: 048
  5. PRAVASTATIN [Concomitant]
     Dosage: 40 MG, 1X/DAY
     Route: 048
  6. FINASTERIDE [Concomitant]
     Indication: BLADDER DISORDER
     Dosage: 5 MG, 1X/DAY
     Route: 048
  7. TERAZOSIN [Concomitant]
     Dosage: 10 MG, 1X/DAY
     Route: 048
  8. COUMADIN [Concomitant]
     Dosage: UNK
     Route: 048
  9. DIVALPROEX SODIUM [Concomitant]
     Indication: BLADDER DISORDER
     Dosage: FREQUENCY: 2X/DAY,
     Route: 048
  10. TEMAZEPAM [Concomitant]
     Indication: INSOMNIA
     Dosage: 15 MG, 1X/DAY
     Route: 048

REACTIONS (1)
  - ATRIAL FIBRILLATION [None]
